FAERS Safety Report 5888404-1 (Version None)
Quarter: 2008Q3

REPORT INFORMATION
  Report Type: 
  Country: None (occurrence: None)
  Receive Date: 20080918
  Receipt Date: 20080908
  Transmission Date: 20090109
  Serious: Yes (Other)
  Sender: FDA-Public Use
  Company Number: US-PFIZER INC-2008075028

PATIENT
  Sex: Male
  Weight: 127 kg

DRUGS (9)
  1. CELEBREX [Suspect]
  2. IBUPROFEN [Suspect]
  3. COREG [Concomitant]
  4. LIPITOR [Concomitant]
  5. LASIX [Concomitant]
  6. ALLOPURINOL [Concomitant]
  7. PACERONE [Concomitant]
  8. FOLTX [Concomitant]
  9. PLAVIX [Concomitant]

REACTIONS (5)
  - ARTHRITIS [None]
  - CORONARY ARTERY DISEASE [None]
  - HEART RATE DECREASED [None]
  - RENAL DISORDER [None]
  - VERTEBRAL ARTERY OCCLUSION [None]
